FAERS Safety Report 9674545 (Version 1)
Quarter: 2013Q4

REPORT INFORMATION
  Report Type: Spontaneous
  Country: US (occurrence: None)
  Receive Date: 20131105
  Receipt Date: 20131105
  Transmission Date: 20140711
  Serious: No
  Sender: FDA-Public Use
  Company Number: None

PATIENT
  Age: 41 Year
  Sex: Female
  Weight: 63.5 kg

DRUGS (6)
  1. DOCUSATE [Suspect]
     Route: 048
  2. LIPITOR [Suspect]
     Route: 048
  3. ASPIRIN [Suspect]
     Route: 048
  4. LEVOFLOXACIN [Suspect]
     Route: 048
  5. COUMADIN [Concomitant]
  6. BEYAZ [Suspect]
     Dates: start: 201304, end: 20130704

REACTIONS (4)
  - Cerebral infarction [None]
  - Protein S deficiency [None]
  - Deep vein thrombosis [None]
  - Iron deficiency anaemia [None]
